FAERS Safety Report 11022098 (Version 1)
Quarter: 2015Q2

REPORT INFORMATION
  Report Type: Spontaneous
  Country: US (occurrence: US)
  Receive Date: 20150413
  Receipt Date: 20150413
  Transmission Date: 20150821
  Serious: Yes (Other)
  Sender: FDA-Public Use
  Company Number: US-BAYER-2015-122259

PATIENT
  Sex: Female

DRUGS (1)
  1. CALLUS REMVR XTHICK [Suspect]
     Active Substance: SALICYLIC ACID
     Route: 061

REACTIONS (2)
  - Skin discolouration [Not Recovered/Not Resolved]
  - Haemorrhage [Unknown]
